FAERS Safety Report 5763836-0 (Version None)
Quarter: 2008Q2

REPORT INFORMATION
  Report Type: 
  Country: None (occurrence: None)
  Receive Date: 20080606
  Receipt Date: 20080606
  Transmission Date: 20081010
  Serious: Yes (Other)
  Sender: FDA-Public Use
  Company Number: None

PATIENT
  Sex: Male

DRUGS (1)
  1. REMICADE [Suspect]
     Dosage: 150 ML/HR

REACTIONS (4)
  - BACK PAIN [None]
  - DYSPNOEA [None]
  - ERYTHEMA [None]
  - PAIN [None]
